FAERS Safety Report 4591583-X (Version None)
Quarter: 2005Q1

REPORT INFORMATION
  Report Type: 
  Country: None (occurrence: None)
  Receive Date: 20050223
  Receipt Date: 20050223
  Transmission Date: 20050727
  Serious: No
  Sender: FDA-Public Use
  Company Number: None

PATIENT
  Age: 64 Year
  Sex: Male

DRUGS (17)
  1. CELECOXIB    100 MG    PFIZER [Suspect]
     Indication: GOUT
     Dosage: 100 MG   Q12H   ORAL
     Route: 048
     Dates: start: 20040624, end: 20040628
  2. CELECOXIB    100 MG    PFIZER [Suspect]
     Indication: PAIN
     Dosage: 100 MG   Q12H   ORAL
     Route: 048
     Dates: start: 20040624, end: 20040628
  3. MINOXIDIL [Concomitant]
  4. METOPROLOL [Concomitant]
  5. SIMVASTATIN [Concomitant]
  6. FUROSEMIDE [Concomitant]
  7. PIPERACILLIN/TAZOBACTAM [Concomitant]
  8. VANCOMYCIN [Concomitant]
  9. FOSINOPRIL [Concomitant]
  10. COLCHICINE [Concomitant]
  11. DIPYRIDAMOLE/ASA [Concomitant]
  12. ALLOPURINOL [Concomitant]
  13. SPIRONOLACTONE [Concomitant]
  14. MEPERIDINE [Concomitant]
  15. LANSOPRAZOLE [Concomitant]
  16. HEPARIN [Concomitant]
  17. GABAPENTIN [Concomitant]

REACTIONS (3)
  - BLOOD CREATININE INCREASED [None]
  - BLOOD UREA INCREASED [None]
  - CONDITION AGGRAVATED [None]
